FAERS Safety Report 15018772 (Version 3)
Quarter: 2018Q2

REPORT INFORMATION
  Report Type: Report from Study
  Country: US (occurrence: US)
  Receive Date: 20180616
  Receipt Date: 20180625
  Transmission Date: 20180711
  Serious: No
  Sender: FDA-Public Use
  Company Number: PHEH2018US023560

PATIENT
  Sex: Male

DRUGS (1)
  1. AFINITOR [Suspect]
     Active Substance: EVEROLIMUS
     Indication: PRODUCT USED FOR UNKNOWN INDICATION
     Dosage: 10 MG, QD
     Route: 065

REACTIONS (8)
  - Back pain [Unknown]
  - Sexual dysfunction [Unknown]
  - Confusional state [Unknown]
  - Abdominal pain upper [Unknown]
  - Hypersomnia [Unknown]
  - Agitation [Unknown]
  - Peripheral swelling [Unknown]
  - Fatigue [Unknown]
